FAERS Safety Report 16010374 (Version 2)
Quarter: 2019Q1

REPORT INFORMATION
  Report Type: Spontaneous
  Country: IT (occurrence: IT)
  Receive Date: 20190225
  Receipt Date: 20190227
  Transmission Date: 20190418
  Serious: Yes (Hospitalization)
  Sender: FDA-Public Use
  Company Number: IT-DSJP-DSE-2019-106614

PATIENT

DRUGS (1)
  1. LIXIANA [Suspect]
     Active Substance: EDOXABAN TOSYLATE
     Indication: THROMBOSIS PROPHYLAXIS
     Dosage: 30 MG, QD
     Route: 048
     Dates: start: 20180101, end: 20190207

REACTIONS (4)
  - Gastritis [Recovered/Resolved]
  - Anaemia [Recovered/Resolved]
  - Gastritis erosive [Recovered/Resolved]
  - Melaena [Recovered/Resolved]

NARRATIVE: CASE EVENT DATE: 20190204
